FAERS Safety Report 22717407 (Version 9)
Quarter: 2023Q4

REPORT INFORMATION
  Report Type: Spontaneous
  Country: RO (occurrence: RO)
  Receive Date: 20230718
  Receipt Date: 20231102
  Transmission Date: 20240110
  Serious: Yes (Other)
  Sender: FDA-Public Use
  Company Number: RO-MYLANLABS-2023M1075386

PATIENT
  Age: 71 Year
  Sex: Male

DRUGS (65)
  1. AMLODIPINE [Interacting]
     Active Substance: AMLODIPINE BESYLATE
     Indication: Product used for unknown indication
     Dosage: QD (CALCIUM CHANNEL BLOCKER)
     Route: 065
  2. VENLAFAXINE [Interacting]
     Active Substance: VENLAFAXINE HYDROCHLORIDE
     Indication: Depression
     Dosage: QD, DAILY USE (SNRI)
     Route: 065
  3. VENLAFAXINE [Interacting]
     Active Substance: VENLAFAXINE HYDROCHLORIDE
     Indication: Sleep disorder
  4. VENLAFAXINE [Interacting]
     Active Substance: VENLAFAXINE HYDROCHLORIDE
     Indication: Hypertension
  5. VENLAFAXINE [Interacting]
     Active Substance: VENLAFAXINE HYDROCHLORIDE
     Indication: Obesity
  6. VENLAFAXINE [Interacting]
     Active Substance: VENLAFAXINE HYDROCHLORIDE
     Indication: Gastrooesophageal reflux disease
  7. VENLAFAXINE [Interacting]
     Active Substance: VENLAFAXINE HYDROCHLORIDE
     Indication: Arthralgia
  8. VENLAFAXINE [Interacting]
     Active Substance: VENLAFAXINE HYDROCHLORIDE
     Indication: Myocardial ischaemia
  9. PANTOPRAZOLE [Interacting]
     Active Substance: PANTOPRAZOLE
     Indication: Gastrooesophageal reflux disease
     Dosage: QD, DAILY USE (PPI)
     Route: 065
  10. PANTOPRAZOLE [Interacting]
     Active Substance: PANTOPRAZOLE
     Indication: Depression
  11. PANTOPRAZOLE [Interacting]
     Active Substance: PANTOPRAZOLE
     Indication: Arthralgia
  12. PANTOPRAZOLE [Interacting]
     Active Substance: PANTOPRAZOLE
     Indication: Hypertension
  13. PANTOPRAZOLE [Interacting]
     Active Substance: PANTOPRAZOLE
     Indication: Obesity
  14. PANTOPRAZOLE [Interacting]
     Active Substance: PANTOPRAZOLE
     Indication: Myocardial ischaemia
  15. PANTOPRAZOLE [Interacting]
     Active Substance: PANTOPRAZOLE
     Indication: Sleep disorder
  16. INDAPAMIDE [Interacting]
     Active Substance: INDAPAMIDE
     Indication: Myocardial ischaemia
     Dosage: QD, DAILY USE (THIAZIDE-LIKE DIURETIC)
     Route: 048
  17. INDAPAMIDE [Interacting]
     Active Substance: INDAPAMIDE
     Indication: Arthralgia
  18. INDAPAMIDE [Interacting]
     Active Substance: INDAPAMIDE
     Indication: Depression
  19. INDAPAMIDE [Interacting]
     Active Substance: INDAPAMIDE
     Indication: Sleep disorder
  20. INDAPAMIDE [Interacting]
     Active Substance: INDAPAMIDE
     Indication: Gastrooesophageal reflux disease
  21. INDAPAMIDE [Interacting]
     Active Substance: INDAPAMIDE
     Indication: Obesity
  22. INDAPAMIDE [Interacting]
     Active Substance: INDAPAMIDE
     Indication: Hypertension
  23. PERINDOPRIL [Interacting]
     Active Substance: PERINDOPRIL
     Indication: Hypertension
     Dosage: QD, DAILY USE (ACE INHIBITOR)
     Route: 065
  24. PERINDOPRIL [Interacting]
     Active Substance: PERINDOPRIL
     Indication: Myocardial ischaemia
  25. PERINDOPRIL [Interacting]
     Active Substance: PERINDOPRIL
     Indication: Arthralgia
  26. PERINDOPRIL [Interacting]
     Active Substance: PERINDOPRIL
     Indication: Gastrooesophageal reflux disease
  27. PERINDOPRIL [Interacting]
     Active Substance: PERINDOPRIL
     Indication: Sleep disorder
  28. PERINDOPRIL [Interacting]
     Active Substance: PERINDOPRIL
     Indication: Obesity
  29. PERINDOPRIL [Interacting]
     Active Substance: PERINDOPRIL
     Indication: Depression
  30. GABAPENTIN [Interacting]
     Active Substance: GABAPENTIN
     Indication: Product used for unknown indication
     Dosage: QD, DAILY USE (ANTIEPILEPTIC)
     Route: 065
  31. CLONAZEPAM [Interacting]
     Active Substance: CLONAZEPAM
     Indication: Depression
     Dosage: QD, DAILY USE (LONG-ACTING BENZODIAZEPINE)
     Route: 065
  32. CLONAZEPAM [Interacting]
     Active Substance: CLONAZEPAM
     Indication: Gastrooesophageal reflux disease
  33. CLONAZEPAM [Interacting]
     Active Substance: CLONAZEPAM
     Indication: Obesity
  34. CLONAZEPAM [Interacting]
     Active Substance: CLONAZEPAM
     Indication: Myocardial ischaemia
  35. CLONAZEPAM [Interacting]
     Active Substance: CLONAZEPAM
     Indication: Sleep disorder
  36. CLONAZEPAM [Interacting]
     Active Substance: CLONAZEPAM
     Indication: Arthralgia
  37. CLONAZEPAM [Interacting]
     Active Substance: CLONAZEPAM
     Indication: Hypertension
  38. FUROSEMIDE [Interacting]
     Active Substance: FUROSEMIDE
     Indication: Myocardial ischaemia
     Dosage: 1DOSAGE FORM,BIWEEKLY (2 WEEKLY) (LOOP DIURETIC)
     Route: 065
  39. FUROSEMIDE [Interacting]
     Active Substance: FUROSEMIDE
     Indication: Hypertension
     Dosage: 1 DOSAGE FORM, QW
     Route: 065
  40. FUROSEMIDE [Interacting]
     Active Substance: FUROSEMIDE
     Indication: Sleep disorder
  41. FUROSEMIDE [Interacting]
     Active Substance: FUROSEMIDE
     Indication: Depression
  42. FUROSEMIDE [Interacting]
     Active Substance: FUROSEMIDE
     Indication: Obesity
  43. FUROSEMIDE [Interacting]
     Active Substance: FUROSEMIDE
     Indication: Gastrooesophageal reflux disease
  44. FUROSEMIDE [Interacting]
     Active Substance: FUROSEMIDE
     Indication: Arthralgia
  45. AMLODIPINE\INDAPAMIDE\PERINDOPRIL [Interacting]
     Active Substance: AMLODIPINE\INDAPAMIDE\PERINDOPRIL
     Indication: Myocardial ischaemia
     Dosage: UNK UNK, QD, DAILY USE
     Route: 065
  46. AMLODIPINE\INDAPAMIDE\PERINDOPRIL [Interacting]
     Active Substance: AMLODIPINE\INDAPAMIDE\PERINDOPRIL
     Indication: Hypertension
  47. AMLODIPINE\INDAPAMIDE\PERINDOPRIL [Interacting]
     Active Substance: AMLODIPINE\INDAPAMIDE\PERINDOPRIL
     Indication: Obesity
  48. AMLODIPINE\INDAPAMIDE\PERINDOPRIL [Interacting]
     Active Substance: AMLODIPINE\INDAPAMIDE\PERINDOPRIL
     Indication: Sleep disorder
  49. AMLODIPINE\INDAPAMIDE\PERINDOPRIL [Interacting]
     Active Substance: AMLODIPINE\INDAPAMIDE\PERINDOPRIL
     Indication: Depression
  50. AMLODIPINE\INDAPAMIDE\PERINDOPRIL [Interacting]
     Active Substance: AMLODIPINE\INDAPAMIDE\PERINDOPRIL
     Indication: Gastrooesophageal reflux disease
  51. AMLODIPINE\INDAPAMIDE\PERINDOPRIL [Interacting]
     Active Substance: AMLODIPINE\INDAPAMIDE\PERINDOPRIL
     Indication: Arthralgia
  52. INDOMETHACIN [Concomitant]
     Active Substance: INDOMETHACIN
     Indication: Arthralgia
     Dosage: QD, DAILY USE (NSAID)
     Route: 065
  53. INDOMETHACIN [Concomitant]
     Active Substance: INDOMETHACIN
     Indication: Obesity
  54. INDOMETHACIN [Concomitant]
     Active Substance: INDOMETHACIN
     Indication: Hypertension
  55. INDOMETHACIN [Concomitant]
     Active Substance: INDOMETHACIN
     Indication: Sleep disorder
  56. INDOMETHACIN [Concomitant]
     Active Substance: INDOMETHACIN
     Indication: Gastrooesophageal reflux disease
  57. INDOMETHACIN [Concomitant]
     Active Substance: INDOMETHACIN
     Indication: Myocardial ischaemia
  58. INDOMETHACIN [Concomitant]
     Active Substance: INDOMETHACIN
     Indication: Depression
  59. IBUPROFEN [Concomitant]
     Active Substance: IBUPROFEN
     Indication: Arthralgia
     Dosage: QD, DAILY USE (NSAID)
     Route: 065
  60. IBUPROFEN [Concomitant]
     Active Substance: IBUPROFEN
     Indication: Gastrooesophageal reflux disease
  61. IBUPROFEN [Concomitant]
     Active Substance: IBUPROFEN
     Indication: Depression
  62. IBUPROFEN [Concomitant]
     Active Substance: IBUPROFEN
     Indication: Sleep disorder
  63. IBUPROFEN [Concomitant]
     Active Substance: IBUPROFEN
     Indication: Myocardial ischaemia
  64. IBUPROFEN [Concomitant]
     Active Substance: IBUPROFEN
     Indication: Hypertension
  65. IBUPROFEN [Concomitant]
     Active Substance: IBUPROFEN
     Indication: Obesity

REACTIONS (6)
  - Arrhythmia [Unknown]
  - Myocardial infarction [Unknown]
  - Drug interaction [Recovered/Resolved]
  - Product prescribing issue [Unknown]
  - Treatment noncompliance [Unknown]
  - Product prescribing error [Recovered/Resolved]

NARRATIVE: CASE EVENT DATE: 20230222
